FAERS Safety Report 13274618 (Version 1)
Quarter: 2017Q1

REPORT INFORMATION
  Report Type: Spontaneous
  Country: SE (occurrence: SE)
  Receive Date: 20170227
  Receipt Date: 20170227
  Transmission Date: 20170428
  Serious: Yes (Other)
  Sender: FDA-Public Use
  Company Number: SE-GLAXOSMITHKLINE-SE2017GSK025745

PATIENT
  Sex: Male

DRUGS (1)
  1. VOXRA [Suspect]
     Active Substance: BUPROPION HYDROCHLORIDE
     Indication: DEPRESSION
     Dosage: 300 MG, UNK

REACTIONS (5)
  - Seizure [Unknown]
  - Respiratory arrest [Unknown]
  - Eczema eyelids [Unknown]
  - Rash [Unknown]
  - Erythema [Unknown]
